FAERS Safety Report 9688363 (Version 1)
Quarter: 2013Q4

REPORT INFORMATION
  Report Type: Spontaneous
  Country: US (occurrence: None)
  Receive Date: 20131113
  Receipt Date: 20131113
  Transmission Date: 20140711
  Serious: Yes (Other)
  Sender: FDA-Public Use
  Company Number: None

PATIENT
  Age: 64 None
  Sex: Female

DRUGS (8)
  1. VALSARTAN-HCTZ [Suspect]
     Indication: HYPERTENSION
     Route: 048
     Dates: start: 20120809, end: 20121013
  2. LOSARTAN POTASSIUM [Suspect]
     Indication: HYPERTENSION
     Route: 048
     Dates: start: 20120809, end: 20121013
  3. METFORMIN [Concomitant]
  4. GLYBURIDE [Concomitant]
  5. SIMVASTATIN [Concomitant]
  6. LEVOXYL [Concomitant]
  7. FELODIPINE [Concomitant]
  8. ASPIRIN [Concomitant]

REACTIONS (5)
  - Lip swelling [None]
  - Dry skin [None]
  - Eye swelling [None]
  - Eyelid oedema [None]
  - Swelling face [None]
